FAERS Safety Report 21772352 (Version 2)
Quarter: 2023Q1

REPORT INFORMATION
  Report Type: Spontaneous
  Country: US (occurrence: None)
  Receive Date: 20221223
  Receipt Date: 20230106
  Transmission Date: 20230417
  Serious: Yes (Other)
  Sender: FDA-Public Use
  Company Number: US-Merck Healthcare KGaA-9374266

PATIENT
  Age: 48 Year
  Sex: Male
  Weight: 72 kg

DRUGS (29)
  1. MAVENCLAD [Suspect]
     Active Substance: CLADRIBINE
     Indication: Multiple sclerosis
     Dosage: THERAPY
     Route: 048
     Dates: start: 20221202, end: 20221204
  2. BACLOFEN [Concomitant]
     Active Substance: BACLOFEN
     Indication: Multiple sclerosis
     Route: 048
     Dates: start: 20220507
  3. REGUTOL [DOCUSATE SODIUM] [Concomitant]
     Indication: Multiple sclerosis
     Route: 048
     Dates: start: 20221004
  4. BENICAR [Concomitant]
     Active Substance: OLMESARTAN MEDOXOMIL
     Indication: Hypertension
     Route: 048
     Dates: start: 20210929
  5. BENICAR [Concomitant]
     Active Substance: OLMESARTAN MEDOXOMIL
     Route: 048
     Dates: start: 20221010
  6. NEURONTIN [Concomitant]
     Active Substance: GABAPENTIN
     Indication: Multiple sclerosis
     Route: 048
     Dates: start: 20220710
  7. KLONOPIN [Concomitant]
     Active Substance: CLONAZEPAM
     Indication: Anxiety
     Route: 048
     Dates: start: 20220201
  8. KLONOPIN [Concomitant]
     Active Substance: CLONAZEPAM
     Route: 048
     Dates: start: 20220908
  9. PROVIGIL [Concomitant]
     Active Substance: MODAFINIL
     Indication: Multiple sclerosis
     Route: 048
     Dates: start: 20220507
  10. METHYLPREDNISOLONE [Concomitant]
     Active Substance: METHYLPREDNISOLONE
     Indication: Multiple sclerosis relapse
     Dosage: AS DIRECTED 21 TABLETS
     Dates: start: 20221204
  11. OXYCONTIN [Concomitant]
     Active Substance: OXYCODONE HYDROCHLORIDE
     Indication: Neuropathy peripheral
     Dosage: TAKE 1 TABLET (5 MG) BY MOUTH EVERY 8 HOURS AS NEEDED FOR PAIN. MAX DAILY AMOUNT: 15 MG. 8 TABLETS
     Dates: start: 20221204
  12. OXYCONTIN [Concomitant]
     Active Substance: OXYCODONE HYDROCHLORIDE
     Indication: Multiple sclerosis
  13. OXYCONTIN [Concomitant]
     Active Substance: OXYCODONE HYDROCHLORIDE
     Indication: Pain
  14. NALOXONE [NALOXONE HYDROCHLORIDE] [Concomitant]
     Indication: Product used for unknown indication
     Dosage: 1 SPRAY 4 MG IN ONE NOSTRIL ONE TIME. MAY REPEAT ALTERNATING NOSTRILS EVERY 2-3 MIN UNTIL RESPONSIVE
     Dates: start: 20221204
  15. XANAX [Concomitant]
     Active Substance: ALPRAZOLAM
     Indication: Product used for unknown indication
     Dates: start: 20211207
  16. LIPITOR [Concomitant]
     Active Substance: ATORVASTATIN CALCIUM
     Indication: Product used for unknown indication
     Dates: start: 20220202
  17. DYPHYLLINE [Concomitant]
     Active Substance: DYPHYLLINE
     Indication: Product used for unknown indication
  18. WELLBUTRIN XL [Concomitant]
     Active Substance: BUPROPION HYDROCHLORIDE
     Indication: Product used for unknown indication
     Dosage: EXTENDED RELEASE TABLET 24 HOURS TABLET
     Dates: start: 20211027
  19. VITAMIN D3 [Concomitant]
     Active Substance: CHOLECALCIFEROL
     Indication: Product used for unknown indication
     Dosage: 5000 UNIT, TAKE ONE TABLET BY MOUTH DAILY
     Route: 048
  20. AMPYRA [Concomitant]
     Active Substance: DALFAMPRIDINE
     Indication: Product used for unknown indication
     Dosage: EXTENDED RELEASE 12 HOURS TABLET
     Route: 048
     Dates: start: 20220222
  21. OMEGA 3 FISH OIL [FISH OIL] [Concomitant]
     Indication: Product used for unknown indication
     Dosage: 340-1000 MG
     Route: 048
  22. CARAFATE [Concomitant]
     Active Substance: SUCRALFATE
     Indication: Product used for unknown indication
     Dates: start: 20210420
  23. REVATIO [Concomitant]
     Active Substance: SILDENAFIL CITRATE
     Indication: Hypertension
     Dosage: TAKE 30 MINUTES PRIOR TO SEXUAL ACTIVITY AS NEEDED
     Dates: start: 20200716
  24. SODIUM CHLORIDE [Concomitant]
     Active Substance: SODIUM CHLORIDE
     Indication: Product used for unknown indication
     Route: 040
     Dates: start: 20221204
  25. SUBLIMAZE [Concomitant]
     Active Substance: FENTANYL CITRATE
     Indication: Product used for unknown indication
     Route: 042
     Dates: start: 20221204
  26. ZOFRAN [Concomitant]
     Active Substance: ONDANSETRON HYDROCHLORIDE
     Indication: Product used for unknown indication
     Dosage: ONE TIME ONLY
     Route: 042
     Dates: start: 20221204
  27. DILAUDID [Concomitant]
     Active Substance: HYDROMORPHONE HYDROCHLORIDE
     Indication: Product used for unknown indication
     Route: 042
     Dates: start: 20221204
  28. ATIVAN [Concomitant]
     Active Substance: LORAZEPAM
     Indication: Product used for unknown indication
     Dosage: ONE TIME ONLY
     Route: 042
     Dates: start: 20221204
  29. DEXAMETHASONE [Concomitant]
     Active Substance: DEXAMETHASONE
     Indication: Product used for unknown indication
     Dosage: TAPER DOSE

REACTIONS (12)
  - Hepatomegaly [Unknown]
  - Hepatic steatosis [Unknown]
  - Cholelithiasis [Unknown]
  - Erythema [Unknown]
  - Oedema peripheral [Unknown]
  - Neuropathy peripheral [Unknown]
  - Chronic idiopathic pain syndrome [Unknown]
  - Aspartate aminotransferase increased [Recovered/Resolved]
  - Alanine aminotransferase increased [Recovered/Resolved]
  - Liver disorder [Unknown]
  - Lymphocyte count decreased [Unknown]
  - Protein total decreased [Unknown]

NARRATIVE: CASE EVENT DATE: 20221204
